FAERS Safety Report 26139928 (Version 1)
Quarter: 2025Q4

REPORT INFORMATION
  Report Type: Spontaneous
  Country: CN (occurrence: CN)
  Receive Date: 20251210
  Receipt Date: 20251210
  Transmission Date: 20260118
  Serious: Yes (Other)
  Sender: PFIZER
  Company Number: CN-PFIZER INC-PV202500144137

PATIENT
  Age: 23 Year
  Sex: Female
  Weight: 58.6 kg

DRUGS (2)
  1. CYTARABINE [Suspect]
     Active Substance: CYTARABINE
     Indication: Acute lymphocytic leukaemia
     Dosage: 4.5 G, 1X/DAY
     Route: 041
     Dates: start: 20251128, end: 20251130
  2. CYTARABINE [Suspect]
     Active Substance: CYTARABINE
     Indication: Premedication

REACTIONS (2)
  - Pruritus [Recovering/Resolving]
  - Erythema [Recovering/Resolving]

NARRATIVE: CASE EVENT DATE: 20251129
